FAERS Safety Report 4312008-5 (Version None)
Quarter: 2004Q1

REPORT INFORMATION
  Report Type: 
  Country: None (occurrence: None)
  Receive Date: 20040305
  Receipt Date: 20040106
  Transmission Date: 20041129
  Serious: No
  Sender: FDA-Public Use
  Company Number: US-GLAXOSMITHKLINE-A0491715A

PATIENT
  Age: 65 Year
  Sex: Male

DRUGS (3)
  1. REQUIP [Suspect]
     Indication: PARKINSON'S DISEASE
     Dosage: 2.5MG FOUR TIMES PER DAY
     Route: 048
  2. SINEMET [Concomitant]
  3. CARBIDOPA AND LEVODOPA [Concomitant]

REACTIONS (2)
  - BALANCE DISORDER [None]
  - DIFFICULTY IN WALKING [None]
